FAERS Safety Report 6180820-6 (Version None)
Quarter: 2009Q2

REPORT INFORMATION
  Report Type: 
  Country: None (occurrence: None)
  Receive Date: 20090506
  Receipt Date: 20090501
  Transmission Date: 20091009
  Serious: Yes (Other)
  Sender: FDA-Public Use
  Company Number: JP-ROXANE LABORATORIES, INC.-2009-RO-00432RO

PATIENT
  Age: 24 Year
  Sex: Female

DRUGS (2)
  1. AZATHIOPRINE [Suspect]
     Indication: CROHN'S DISEASE
  2. 5-AMINOSALICYLIC ACID [Concomitant]
     Indication: CROHN'S DISEASE
     Route: 048

REACTIONS (2)
  - AGRANULOCYTOSIS [None]
  - ALOPECIA [None]
